FAERS Safety Report 25524195 (Version 1)
Quarter: 2025Q3

REPORT INFORMATION
  Report Type: Spontaneous
  Country: US (occurrence: None)
  Receive Date: 20250703
  Receipt Date: 20250703
  Transmission Date: 20251021
  Serious: Yes (Other)
  Sender: FDA-CTU
  Company Number: None

PATIENT
  Age: 88 Year
  Sex: Female

DRUGS (1)
  1. CAPECITABINE [Suspect]
     Active Substance: CAPECITABINE
     Indication: Neoplasm malignant
     Dosage: OTHER FREQUENCY : BID 14 DAY CYC;E;?
     Route: 048
     Dates: start: 20250507, end: 20250701

REACTIONS (2)
  - Hand-foot-and-mouth disease [None]
  - Disease recurrence [None]

NARRATIVE: CASE EVENT DATE: 20250701
